FAERS Safety Report 7022269-X (Version None)
Quarter: 2010Q3

REPORT INFORMATION
  Report Type: 
  Country: None (occurrence: None)
  Receive Date: 20100930
  Receipt Date: 20100921
  Transmission Date: 20110219
  Serious: Yes (Death)
  Sender: FDA-Public Use
  Company Number: US-GENZYME-FABR-1001395

PATIENT

DRUGS (4)
  1. FABRAZYME [Suspect]
     Indication: FABRY'S DISEASE
     Dosage: 75 MG, Q2W
     Route: 042
     Dates: end: 20100517
  2. FABRAZYME [Suspect]
     Dosage: 25 MG, Q2W
     Route: 042
     Dates: start: 20100401, end: 20100517
  3. FABRAZYME [Suspect]
     Dosage: 40 MG, UNK
     Route: 042
  4. FABRAZYME [Suspect]
     Dosage: 35 MG, UNK
     Route: 042

REACTIONS (1)
  - SUDDEN DEATH [None]
